FAERS Safety Report 7396696-5 (Version None)
Quarter: 2011Q2

REPORT INFORMATION
  Report Type: 
  Country: None (occurrence: None)
  Receive Date: 20110406
  Receipt Date: 20110324
  Transmission Date: 20111010
  Serious: Yes (Hospitalization, Other)
  Sender: FDA-Public Use
  Company Number: JP-ROCHE-763861

PATIENT
  Sex: Male
  Weight: 56 kg

DRUGS (7)
  1. TAMIFLU [Suspect]
     Route: 048
     Dates: start: 20110130, end: 20110202
  2. TAMSULOSIN HYDROCHLORIDE [Concomitant]
     Dosage: UNCERTAIN DOSAGE
     Route: 048
     Dates: start: 20040101, end: 20110206
  3. TAMIFLU [Suspect]
     Indication: INFLUENZA
     Route: 048
     Dates: start: 20110129, end: 20110129
  4. METHISTA [Concomitant]
     Route: 048
     Dates: start: 20110129, end: 20110205
  5. TAMIFLU [Suspect]
     Route: 048
     Dates: start: 20110203, end: 20110203
  6. RESPLEN [Concomitant]
     Route: 048
     Dates: start: 20110129, end: 20110205
  7. ERYTHROCIN LACTOBIONATE [Concomitant]
     Dosage: UNCERTAIN DOSAGE
     Route: 048
     Dates: end: 20110206

REACTIONS (3)
  - HEPATITIS ACUTE [None]
  - PNEUMONIA PRIMARY ATYPICAL [None]
  - GASTROENTERITIS [None]
